FAERS Safety Report 9440904 (Version 1)
Quarter: 2013Q3

REPORT INFORMATION
  Report Type: Spontaneous
  Country: JP (occurrence: JP)
  Receive Date: 20130805
  Receipt Date: 20130805
  Transmission Date: 20140515
  Serious: Yes (Hospitalization)
  Sender: FDA-Public Use
  Company Number: JP-VERTEX PHARMACEUTICALS INC-2013-008512

PATIENT
  Age: 59 Year
  Sex: Male

DRUGS (1)
  1. TELAVIC [Suspect]
     Indication: HEPATITIS C
     Route: 048

REACTIONS (1)
  - Drug eruption [Recovered/Resolved]
